FAERS Safety Report 7139101-6 (Version None)
Quarter: 2010Q4

REPORT INFORMATION
  Report Type: 
  Country: None (occurrence: None)
  Receive Date: 20101206
  Receipt Date: 20101126
  Transmission Date: 20110411
  Serious: Yes (Hospitalization)
  Sender: FDA-Public Use
  Company Number: B0687169A

PATIENT
  Age: 72 Year
  Sex: Male

DRUGS (1)
  1. COMBODART [Suspect]
     Indication: BENIGN PROSTATIC HYPERPLASIA
     Dosage: .5MG PER DAY
     Route: 048

REACTIONS (2)
  - CIRCULATORY COLLAPSE [None]
  - FEELING ABNORMAL [None]
